FAERS Safety Report 10910121 (Version 1)
Quarter: 2015Q1

REPORT INFORMATION
  Report Type: Spontaneous
  Country: US (occurrence: US)
  Receive Date: 20150312
  Receipt Date: 20150312
  Transmission Date: 20150721
  Serious: No
  Sender: FDA-Public Use
  Company Number: US-SA-2014SA111938

PATIENT
  Age: 74 Year
  Sex: Male
  Weight: 180 kg

DRUGS (2)
  1. NASACORT ALLERGY 24HR [Suspect]
     Active Substance: TRIAMCINOLONE ACETONIDE
     Indication: HYPERSENSITIVITY
     Dosage: USED FOR 1 MONTH
     Route: 065
  2. NASACORT ALLERGY 24HR [Suspect]
     Active Substance: TRIAMCINOLONE ACETONIDE
     Indication: NASAL CONGESTION
     Dosage: USED FOR 1 MONTH
     Route: 065

REACTIONS (2)
  - Anosmia [Not Recovered/Not Resolved]
  - Epistaxis [Recovered/Resolved]
